FAERS Safety Report 6413966-5 (Version None)
Quarter: 2009Q4

REPORT INFORMATION
  Report Type: 
  Country: None (occurrence: None)
  Receive Date: 20091022
  Receipt Date: 20091022
  Transmission Date: 20100525
  Serious: Yes (Life-Threatening, Hospitalization, Disabling, Other)
  Sender: FDA-Public Use
  Company Number: None

PATIENT
  Age: 29 Year
  Sex: Female
  Weight: 43.0917 kg

DRUGS (1)
  1. HALCION [Suspect]
     Indication: SEDATIVE THERAPY
     Dosage: .25 X 2 I HR BEFORE ORAL
     Route: 048
     Dates: start: 20071102, end: 20071102

REACTIONS (6)
  - ABNORMAL BEHAVIOUR [None]
  - AGGRESSION [None]
  - INSOMNIA [None]
  - NIGHTMARE [None]
  - OFF LABEL USE [None]
  - PERSONALITY CHANGE [None]
